FAERS Safety Report 5720822-4 (Version None)
Quarter: 2008Q2

REPORT INFORMATION
  Report Type: 
  Country: None (occurrence: None)
  Receive Date: 20080429
  Receipt Date: 20080423
  Transmission Date: 20081010
  Serious: Yes (Other)
  Sender: FDA-Public Use
  Company Number: PHRM2008FR01370

PATIENT
  Age: 65 Year
  Sex: Male

DRUGS (1)
  1. TEGRETOL [Suspect]
     Indication: EPILEPSY
     Dosage: FROM 150 TO 200 MG DAILY
     Route: 048

REACTIONS (2)
  - SALIVARY GLAND CANCER [None]
  - SURGERY [None]
